FAERS Safety Report 6972793-0 (Version None)
Quarter: 2010Q3

REPORT INFORMATION
  Report Type: 
  Country: None (occurrence: None)
  Receive Date: 20100909
  Receipt Date: 20100831
  Transmission Date: 20110219
  Serious: Yes (Other)
  Sender: FDA-Public Use
  Company Number: US-PFIZER INC-2010111000

PATIENT
  Age: 69 Year
  Sex: Male
  Weight: 79.3 kg

DRUGS (5)
  1. ZITHROMAX [Suspect]
     Indication: MYCOBACTERIAL INFECTION
     Dates: start: 20100101
  2. ETHAMBUTOL HYDROCHLORIDE [Concomitant]
     Indication: MYCOBACTERIAL INFECTION
     Dosage: 1200 MG, 1X/DAY
     Dates: start: 20100101
  3. AVELOX [Concomitant]
     Dosage: 400 MG, UNK
  4. NIASPAN [Concomitant]
     Dosage: 2000 MG, 1X/DAY
  5. WELCHOL [Concomitant]
     Dosage: 5 UNITS UNKNOWN;

REACTIONS (1)
  - HEPATIC ENZYME INCREASED [None]
